FAERS Safety Report 8221551-8 (Version None)
Quarter: 2012Q1

REPORT INFORMATION
  Report Type: 
  Country: None (occurrence: None)
  Receive Date: 20120320
  Receipt Date: 20120312
  Transmission Date: 20120608
  Serious: Yes (Hospitalization)
  Sender: FDA-Public Use
  Company Number: PT-JNJFOC-20110312336

PATIENT
  Age: 77 Year
  Sex: Female
  Weight: 58 kg

DRUGS (11)
  1. LERCANIDIPINE [Concomitant]
     Route: 048
     Dates: start: 20080101
  2. FOLIC ACID [Concomitant]
     Route: 048
     Dates: start: 20050301
  3. ATENOLOL [Concomitant]
     Route: 048
     Dates: start: 20100101
  4. METHOTREXATE [Suspect]
     Indication: ILL-DEFINED DISORDER
     Route: 048
     Dates: start: 20050301
  5. SIMVASTATIN [Concomitant]
     Route: 048
     Dates: start: 20070101
  6. ALPRAZOLAM [Concomitant]
     Route: 048
     Dates: start: 20100101
  7. LANSOPRAZOLE [Concomitant]
     Route: 048
     Dates: start: 20050101
  8. GOLIMUMAB [Suspect]
     Indication: RHEUMATOID ARTHRITIS
     Route: 058
     Dates: start: 20110223
  9. ENALAPRIL [Concomitant]
     Route: 048
     Dates: start: 20080101
  10. GOLIMUMAB [Suspect]
     Route: 058
     Dates: start: 20101123
  11. OSSEOR [Concomitant]
     Route: 048
     Dates: start: 20090101

REACTIONS (2)
  - BRONCHOSPASM [None]
  - RESPIRATORY TRACT INFECTION [None]
